FAERS Safety Report 8621768 (Version 2)
Quarter: 2012Q4

REPORT INFORMATION
  Report Type: 
  Country: US (occurrence: US)
  Receive Date: 20120619
  Receipt Date: 20121005
  Transmission Date: 20130627
  Serious: Yes (Life-Threatening, Hospitalization)
  Sender: FDA-Public Use
  Company Number: US-BAYER-2012-058165

PATIENT
  Age: 25 Year
  Sex: Female

DRUGS (17)
  1. YAZ [Suspect]
     Indication: CONTRACEPTION
     Dosage: UNK
     Dates: start: 20071231, end: 200803
  2. YAZ [Suspect]
     Indication: CONTRACEPTION
     Dosage: UNK
     Dates: start: 20081211, end: 20090528
  3. YASMIN [Suspect]
     Indication: CONTRACEPTION
     Dosage: UNK
     Dates: start: 20071231, end: 200803
  4. YASMIN [Suspect]
     Indication: CONTRACEPTION
     Dosage: UNK
     Dates: start: 20081211, end: 20090528
  5. MAXAIR [Concomitant]
     Dosage: UNK
     Route: 048
     Dates: start: 20090320
  6. ADVAIR [Concomitant]
     Dosage: UNK
     Route: 048
     Dates: start: 20090320
  7. ZYRTEC [Concomitant]
     Dosage: UNK
     Route: 048
     Dates: start: 20090320
  8. FLONASE [Concomitant]
     Dosage: UNK
     Route: 048
     Dates: start: 20090320
  9. XANAX [Concomitant]
     Indication: ANXIETY
     Dosage: 2 mg, UNK
     Route: 048
     Dates: start: 2009
  10. TAMIFLU [Concomitant]
     Dosage: 75 mg, UNK
     Route: 048
     Dates: start: 20090501
  11. PAXIL [Concomitant]
     Indication: DEPRESSION
     Dosage: 20 mg, UNK
     Route: 048
     Dates: start: 20090320, end: 20090618
  12. BYSTOLIC [Concomitant]
     Dosage: 2.5 mg, UNK
     Route: 048
     Dates: start: 20090320, end: 20090618
  13. PROVIGIL [Concomitant]
     Indication: ATTENTION DEFICIT/HYPERACTIVITY DISORDER
     Dosage: 400 mg, UNK
     Route: 048
     Dates: start: 20090320, end: 20090618
  14. PERCOCET [Concomitant]
  15. NEBIVOLOL [Concomitant]
  16. ALBUTEROL [Concomitant]
  17. MODAFINIL [Concomitant]

REACTIONS (11)
  - Thrombophlebitis superficial [None]
  - Deep vein thrombosis [None]
  - Injury [None]
  - Pain [None]
  - Anxiety [None]
  - Anhedonia [None]
  - Fear [None]
  - Pain in extremity [None]
  - Musculoskeletal stiffness [None]
  - Depression [None]
  - Anxiety [None]
